FAERS Safety Report 18592114 (Version 3)
Quarter: 2021Q3

REPORT INFORMATION
  Report Type: Spontaneous
  Country: US (occurrence: US)
  Receive Date: 20201208
  Receipt Date: 20210820
  Transmission Date: 20211014
  Serious: Yes (Death)
  Sender: FDA-Public Use
  Company Number: US-CELGENEUS-USA-20201202121

PATIENT
  Age: 47 Year
  Sex: Female

DRUGS (2)
  1. POMALYST [Suspect]
     Active Substance: POMALIDOMIDE
     Indication: NON-HODGKIN^S LYMPHOMA
     Dosage: 4 MILLIGRAM
     Route: 048
     Dates: start: 20201016, end: 20201025
  2. POMALYST [Suspect]
     Active Substance: POMALIDOMIDE
     Indication: OFF LABEL USE
     Dosage: 4 MILLIGRAM
     Route: 048
     Dates: start: 20201114

REACTIONS (3)
  - Pyrexia [Fatal]
  - Hypoxia [Fatal]
  - Mental status changes [Fatal]

NARRATIVE: CASE EVENT DATE: 20201115
